FAERS Safety Report 4382661-9 (Version None)
Quarter: 2004Q2

REPORT INFORMATION
  Report Type: 
  Country: None (occurrence: None)
  Receive Date: 20040622
  Receipt Date: 20040608
  Transmission Date: 20050107
  Serious: Yes (Other)
  Sender: FDA-Public Use
  Company Number: AU-GLAXOSMITHKLINE-B0335770A

PATIENT
  Age: 11 Year
  Sex: Male

DRUGS (2)
  1. LAMICTAL [Suspect]
     Indication: COMPLEX PARTIAL SEIZURES
     Route: 065
  2. VALPROATE [Concomitant]
     Indication: COMPLEX PARTIAL SEIZURES
     Route: 065

REACTIONS (17)
  - COAGULOPATHY [None]
  - COUGH [None]
  - DIARRHOEA [None]
  - EOSINOPHILIA [None]
  - EYE REDNESS [None]
  - HEADACHE [None]
  - HEPATIC ENZYME INCREASED [None]
  - HEPATOSPLENOMEGALY [None]
  - HYPONATRAEMIA [None]
  - MUSCULOSKELETAL STIFFNESS [None]
  - MYCOPLASMA SEROLOGY POSITIVE [None]
  - OEDEMA [None]
  - RASH [None]
  - STREPTOCOCCAL SEROLOGY POSITIVE [None]
  - SWELLING FACE [None]
  - THROMBOCYTOPENIA [None]
  - VOMITING [None]
